FAERS Safety Report 16753264 (Version 1)
Quarter: 2019Q3

REPORT INFORMATION
  Report Type: Spontaneous
  Country: FR (occurrence: FR)
  Receive Date: 20190829
  Receipt Date: 20190829
  Transmission Date: 20191005
  Serious: Yes (Hospitalization)
  Sender: FDA-Public Use
  Company Number: FR-ACCORD-153266

PATIENT
  Age: 50 Year
  Sex: Male
  Weight: 72 kg

DRUGS (6)
  1. CARBOPLATIN. [Suspect]
     Active Substance: CARBOPLATIN
     Indication: LUNG NEOPLASM MALIGNANT
     Route: 041
     Dates: start: 20190701, end: 20190701
  2. ALIMTA [Suspect]
     Active Substance: PEMETREXED DISODIUM
     Indication: LUNG NEOPLASM MALIGNANT
     Route: 041
     Dates: start: 20190701, end: 20190701
  3. DIAZEPAM. [Suspect]
     Active Substance: DIAZEPAM
     Indication: PRODUCT USED FOR UNKNOWN INDICATION
     Route: 041
     Dates: start: 20190701, end: 20190710
  4. KETAMINE [Suspect]
     Active Substance: KETAMINE
     Indication: PAIN
     Route: 041
     Dates: start: 20190628, end: 20190718
  5. MORPHINE [Concomitant]
     Active Substance: MORPHINE
     Indication: PAIN
     Route: 041
     Dates: start: 20190613
  6. MIANSERINE ARROW [Suspect]
     Active Substance: MIANSERIN HYDROCHLORIDE
     Indication: PRODUCT USED FOR UNKNOWN INDICATION
     Route: 048
     Dates: start: 20190703, end: 20190709

REACTIONS (2)
  - Condition aggravated [Recovering/Resolving]
  - Hepatocellular injury [Recovering/Resolving]

NARRATIVE: CASE EVENT DATE: 20190707
